FAERS Safety Report 9768425 (Version 1)
Quarter: 2013Q4

REPORT INFORMATION
  Report Type: Spontaneous
  Country: US (occurrence: US)
  Receive Date: 20131217
  Receipt Date: 20131217
  Transmission Date: 20140711
  Serious: Yes (Hospitalization)
  Sender: FDA-Public Use
  Company Number: US-B.I. PHARMACEUTICALS,INC./RIDGEFIELD-2013-BI-41381BP

PATIENT
  Age: 86 Year
  Sex: Female

DRUGS (2)
  1. TRADJENTA [Suspect]
     Indication: BLOOD GLUCOSE ABNORMAL
     Dosage: 5 MG
     Route: 048
     Dates: start: 201311, end: 20131116
  2. GLIPIZIDE [Concomitant]
     Indication: BLOOD GLUCOSE ABNORMAL
     Dates: end: 20131116

REACTIONS (1)
  - Cerebrovascular accident [Not Recovered/Not Resolved]
